FAERS Safety Report 5067840-X (Version None)
Quarter: 2006Q3

REPORT INFORMATION
  Report Type: 
  Country: None (occurrence: None)
  Receive Date: 20060731
  Receipt Date: 20060721
  Transmission Date: 20061208
  Serious: No
  Sender: FDA-Public Use
  Company Number: 06H-163-0308691-00

PATIENT
  Age: 90 Year
  Sex: Female
  Weight: 77.1115 kg

DRUGS (3)
  1. QUELICIN [Suspect]
     Indication: INTUBATION
     Dosage: 100 MG, ONCE, INTRAVENOUS
     Route: 042
     Dates: start: 20060709, end: 20060709
  2. OXYGEN (OXYGEN) [Concomitant]
  3. VERSED [Concomitant]

REACTIONS (1)
  - MUSCLE RIGIDITY [None]
